FAERS Safety Report 6648465-9 (Version None)
Quarter: 2010Q1

REPORT INFORMATION
  Report Type: 
  Country: None (occurrence: None)
  Receive Date: 20100324
  Receipt Date: 20100310
  Transmission Date: 20100710
  Serious: Yes (Other)
  Sender: FDA-Public Use
  Company Number: ES-EISAI INC.-E3810-03612-SPO-ES

PATIENT
  Age: 27 Year
  Sex: Male

DRUGS (6)
  1. PARIET (RABEPRAZOLE) [Suspect]
     Route: 048
     Dates: start: 20100201
  2. PARIET (RABEPRAZOLE) [Suspect]
     Indication: GASTRIC ULCER
  3. MOTILIUM [Suspect]
     Dates: start: 20100201
  4. MOTILIUM [Suspect]
     Indication: GASTRIC ULCER
  5. URBAL [Concomitant]
  6. URBAL [Concomitant]
     Indication: GASTRIC ULCER

REACTIONS (1)
  - VERTIGO [None]
